FAERS Safety Report 5771516-0 (Version None)
Quarter: 2008Q2

REPORT INFORMATION
  Report Type: 
  Country: None (occurrence: None)
  Receive Date: 20080612
  Receipt Date: 20080612
  Transmission Date: 20081010
  Serious: Yes (Hospitalization)
  Sender: FDA-Public Use
  Company Number: None

PATIENT
  Sex: Female
  Weight: 72.1219 kg

DRUGS (8)
  1. RAMAPRIL 10MG COBALT LAB / ARROW PHARMACEUTICALS [Suspect]
     Indication: HYPERTENSION
     Dosage: 10MG QD PO/1 DOSE
     Route: 048
     Dates: start: 20080505, end: 20080505
  2. TOPROL-XL [Concomitant]
  3. ISOSPRBIDE [Concomitant]
  4. ASPIRIN [Concomitant]
  5. HYDROCHLOROTHIAZIDE [Concomitant]
  6. CRESTOR [Concomitant]
  7. CARDURA [Concomitant]
  8. NEXIUM [Concomitant]

REACTIONS (2)
  - ANGIOEDEMA [None]
  - THERAPEUTIC RESPONSE UNEXPECTED WITH DRUG SUBSTITUTION [None]
